FAERS Safety Report 11640264 (Version 1)
Quarter: 2015Q4

REPORT INFORMATION
  Report Type: Spontaneous
  Country: GB (occurrence: GB)
  Receive Date: 20151019
  Receipt Date: 20151019
  Transmission Date: 20160304
  Serious: Yes (Hospitalization)
  Sender: FDA-Public Use
  Company Number: GB-FRESENIUS KABI-FK201504981

PATIENT
  Age: 69 Year
  Sex: Female

DRUGS (17)
  1. DOCUSATE [Concomitant]
     Active Substance: DOCUSATE
  2. SIMVASTATIN. [Concomitant]
     Active Substance: SIMVASTATIN
     Dates: start: 20150812
  3. GABAPENTIN. [Concomitant]
     Active Substance: GABAPENTIN
  4. LEFLUNOMIDE. [Suspect]
     Active Substance: LEFLUNOMIDE
     Indication: RHEUMATOID ARTHRITIS
  5. E45 [Concomitant]
     Active Substance: LANOLIN\LIGHT MINERAL OIL\PARAFFIN
  6. MST CONTINUS [Concomitant]
     Active Substance: MORPHINE SULFATE
  7. ADCAL D3 [Concomitant]
     Active Substance: CALCIUM CARBONATE\CHOLECALCIFEROL
  8. CETIRIZINE [Concomitant]
     Active Substance: CETIRIZINE HYDROCHLORIDE
  9. NITROFURANTOIN. [Concomitant]
     Active Substance: NITROFURANTOIN
     Dates: start: 20150901
  10. SENNA [Concomitant]
     Active Substance: SENNA LEAF\SENNOSIDES\SENNOSIDES A AND B
  11. FOLIC ACID. [Concomitant]
     Active Substance: FOLIC ACID
  12. OMEPRAZOLE. [Concomitant]
     Active Substance: OMEPRAZOLE
  13. METHOTREXATE (MANUFACTURER UNKNOWN) [Suspect]
     Active Substance: METHOTREXATE
     Indication: PRODUCT USED FOR UNKNOWN INDICATION
     Route: 048
  14. CYCLIZINE [Concomitant]
     Active Substance: CYCLIZINE
  15. PARACETAMOL [Concomitant]
     Active Substance: ACETAMINOPHEN
  16. BISOPROLOL [Concomitant]
     Active Substance: BISOPROLOL
  17. ORAMORPH [Concomitant]
     Active Substance: MORPHINE SULFATE

REACTIONS (2)
  - Posterior reversible encephalopathy syndrome [Recovering/Resolving]
  - Status epilepticus [Unknown]

NARRATIVE: CASE EVENT DATE: 20150916
